FAERS Safety Report 9081143 (Version 1)
Quarter: 2013Q1

REPORT INFORMATION
  Report Type: Report from Study
  Country: US (occurrence: US)
  Receive Date: 20130130
  Receipt Date: 20130130
  Transmission Date: 20140127
  Serious: No
  Sender: FDA-Public Use
  Company Number: US-ABBOTT-12P-163-0962125-00

PATIENT
  Age: 54 Year
  Sex: Female
  Weight: 58.57 kg

DRUGS (5)
  1. HUMIRA 40 MG/0.8 ML PEN [Suspect]
     Indication: CROHN^S DISEASE
     Dosage: ONE TIME DOSE
     Route: 058
     Dates: start: 20120705, end: 20120705
  2. HUMIRA 40 MG/0.8 ML PEN [Suspect]
     Dosage: ONE TIME DOSE
     Route: 058
     Dates: start: 20120719, end: 20120719
  3. ASACOL [Suspect]
     Indication: CROHN^S DISEASE
  4. ELMIRON [Concomitant]
     Indication: PRODUCT USED FOR UNKNOWN INDICATION
  5. ESTRADIOL [Concomitant]
     Indication: PRODUCT USED FOR UNKNOWN INDICATION

REACTIONS (1)
  - Diarrhoea [Not Recovered/Not Resolved]
